FAERS Safety Report 16925452 (Version 1)
Quarter: 2019Q4

REPORT INFORMATION
  Report Type: Spontaneous
  Country: JP (occurrence: JP)
  Receive Date: 20191016
  Receipt Date: 20191016
  Transmission Date: 20200122
  Serious: Yes (Other)
  Sender: FDA-Public Use
  Company Number: NVSC2019JP002692

PATIENT
  Age: 68 Year
  Sex: Male

DRUGS (6)
  1. RITUXIMAB. [Suspect]
     Active Substance: RITUXIMAB
     Indication: B-CELL LYMPHOMA STAGE IV
     Route: 065
  2. PREDNISOLONE. [Suspect]
     Active Substance: PREDNISOLONE
     Indication: DIFFUSE LARGE B-CELL LYMPHOMA STAGE IV
     Route: 065
  3. CYCLOPHOSPHAMIDE. [Suspect]
     Active Substance: CYCLOPHOSPHAMIDE
     Indication: DIFFUSE LARGE B-CELL LYMPHOMA STAGE IV
     Route: 065
  4. DEXAMETHASONE. [Suspect]
     Active Substance: DEXAMETHASONE
     Indication: DIFFUSE LARGE B-CELL LYMPHOMA STAGE IV
     Route: 065
  5. DOXORUBICIN [Suspect]
     Active Substance: DOXORUBICIN
     Indication: DIFFUSE LARGE B-CELL LYMPHOMA STAGE IV
     Route: 065
  6. GEMCITABINE. [Suspect]
     Active Substance: GEMCITABINE
     Indication: DIFFUSE LARGE B-CELL LYMPHOMA STAGE IV
     Route: 065

REACTIONS (2)
  - Diffuse large B-cell lymphoma recurrent [Unknown]
  - Therapeutic response decreased [Unknown]
